FAERS Safety Report 20493480 (Version 2)
Quarter: 2022Q1

REPORT INFORMATION
  Report Type: Report from Study
  Country: US (occurrence: US)
  Receive Date: 20220220
  Receipt Date: 20220304
  Transmission Date: 20220423
  Serious: Yes (Hospitalization)
  Sender: FDA-Public Use
  Company Number: US-AMGEN-USACT2020107342

PATIENT
  Age: 73 Year
  Sex: Female
  Weight: 56.2 kg

DRUGS (31)
  1. AMG-510 [Suspect]
     Active Substance: AMG-510
     Indication: Non-small cell lung cancer stage IV
     Dosage: 480 MILLIGRAM
     Route: 048
     Dates: start: 20200430
  2. AMG-510 [Suspect]
     Active Substance: AMG-510
     Indication: K-ras gene mutation
     Dosage: 360 MILLIGRAM, BID
     Route: 048
     Dates: start: 20200707
  3. SENNOSIDES A AND B [Concomitant]
     Active Substance: SENNOSIDES A AND B
     Dosage: 8.6 MILLIGRAM, QD
     Route: 048
     Dates: start: 20200325
  4. KENALOG [Concomitant]
     Active Substance: TRIAMCINOLONE ACETONIDE
     Dosage: 0.5 GRAM, BID
     Route: 061
     Dates: start: 20200605
  5. TRAMADOL [Concomitant]
     Active Substance: TRAMADOL
     Dosage: 50 MILLIGRAM, Q8H (AS NECESSARY)
     Route: 048
     Dates: start: 20200423
  6. TYLENOL [Concomitant]
     Active Substance: ACETAMINOPHEN
     Dosage: 650 MILLIGRAM
     Route: 048
     Dates: start: 19800101
  7. ALPRAZOLAM [Concomitant]
     Active Substance: ALPRAZOLAM
     Dosage: 0.5 MILLIGRAM, BID
     Route: 048
     Dates: start: 20200514
  8. LACTOBACILLUS ACIDOPHILUS [Concomitant]
     Active Substance: LACTOBACILLUS ACIDOPHILUS
     Dosage: 1 UNK
     Route: 048
     Dates: start: 20160204
  9. BENZONATATE [Concomitant]
     Active Substance: BENZONATATE
     Dosage: 100 MILLIGRAM, TID
     Route: 048
     Dates: start: 20200218
  10. OXYCODONE [Concomitant]
     Active Substance: OXYCODONE
     Dosage: 5-10 MILLIGRAM, Q4H (AS NECESSSARY)
     Route: 048
     Dates: start: 20200407
  11. LACTATED RINGERS SOLUTION [Concomitant]
     Active Substance: CALCIUM CHLORIDE\POTASSIUM CHLORIDE\SODIUM CHLORIDE\SODIUM LACTATE
     Dosage: 1000 MILLILITER
     Route: 042
     Dates: start: 20200608, end: 20200611
  12. MAGNESIUM CITRATE [Concomitant]
     Active Substance: MAGNESIUM CITRATE
     Dosage: 296 MILLILITER
     Route: 048
     Dates: start: 20200609, end: 20200609
  13. FENTANYL [Concomitant]
     Active Substance: FENTANYL
     Dosage: 25 MICROGRAM
     Route: 042
     Dates: start: 20200610, end: 20200610
  14. VANCOMYCIN [Concomitant]
     Active Substance: VANCOMYCIN
     Dosage: 1000 MILLIGRAM, AND 1 GRAM
     Route: 042
     Dates: start: 20200610, end: 20200614
  15. ASCORBIC ACID;TOCOPHEROL;VACCINIUM MACROCARPON [Concomitant]
     Dosage: 4200 UNK, QD
     Route: 048
     Dates: start: 20160204
  16. SODIUM CHLORIDE [Concomitant]
     Active Substance: SODIUM CHLORIDE
     Dosage: 30-1000 MILLILITER
     Dates: start: 20200415, end: 20200705
  17. OMNIPAQUE [Concomitant]
     Active Substance: IOHEXOL
     Dosage: 100 MILLILITER
     Route: 042
     Dates: start: 20200608, end: 20200608
  18. VISIPAQUE [Concomitant]
     Active Substance: IODIXANOL
     Dosage: 100 MILLILITER
     Route: 042
     Dates: start: 20200609, end: 20200609
  19. DORZOLAMIDE HYDROCHLORIDE\TIMOLOL MALEATE [Concomitant]
     Active Substance: DORZOLAMIDE HYDROCHLORIDE\TIMOLOL MALEATE
     Dosage: 22.3 MILLIGRAM, QD
     Route: 050
     Dates: start: 20191213
  20. GABAPENTIN [Concomitant]
     Active Substance: GABAPENTIN
     Dosage: 100 MILLIGRAM, BID
     Route: 048
     Dates: start: 20170810
  21. LORAZEPAM [Concomitant]
     Active Substance: LORAZEPAM
     Dosage: 0.5 MILLIGRAM, AS NECESSARY (NIGHTLY)
     Route: 048
     Dates: start: 20200521
  22. POLYETHYLENE GLYCOLS [Concomitant]
     Active Substance: POLYETHYLENE GLYCOLS
     Dosage: 17 GRAM, BID
     Route: 048
     Dates: start: 20200325
  23. PROMETHAZINE [Concomitant]
     Active Substance: PROMETHAZINE HYDROCHLORIDE
     Dosage: 12.5 MILLIGRAM, Q6H (AS NECESSARY)
     Route: 054
     Dates: start: 20200327
  24. MAGNESIUM SULFATE [Concomitant]
     Active Substance: MAGNESIUM SULFATE
     Dosage: 4 GRAM
     Route: 042
     Dates: start: 20200612, end: 20200612
  25. LIDOCAINE [Concomitant]
     Active Substance: LIDOCAINE
     Dosage: 5 MILLILITER
     Route: 042
     Dates: start: 20200612, end: 20200612
  26. LOVENOX [Concomitant]
     Active Substance: ENOXAPARIN SODIUM
     Dosage: 40 MILLIGRAM
     Route: 058
     Dates: start: 20200610, end: 20200616
  27. FLAGYL [Concomitant]
     Active Substance: METRONIDAZOLE\METRONIDAZOLE HYDROCHLORIDE
     Dosage: 500 MILLIGRAM
     Route: 042
     Dates: start: 20200613, end: 20200614
  28. AUGMENTIN [Concomitant]
     Active Substance: AMOXICILLIN\CLAVULANATE POTASSIUM
     Dosage: 1 UNK
     Route: 048
     Dates: start: 20200616, end: 20200623
  29. AMOXICILLIN\SULBACTAM [Concomitant]
     Active Substance: AMOXICILLIN\SULBACTAM
     Dosage: 3 GRAM
     Route: 042
     Dates: start: 20200614, end: 20200616
  30. HUMAN RED BLOOD CELL [Concomitant]
     Active Substance: HUMAN RED BLOOD CELL
     Dosage: 1 UNK
     Route: 042
     Dates: start: 20200613, end: 20200613
  31. ONDANSETRON [Concomitant]
     Active Substance: ONDANSETRON
     Dosage: 8 MILLIGRAM
     Route: 048
     Dates: start: 20191211

REACTIONS (1)
  - Hypercalcaemia [Recovered/Resolved]

NARRATIVE: CASE EVENT DATE: 20200702
